FAERS Safety Report 5101778-4 (Version None)
Quarter: 2006Q3

REPORT INFORMATION
  Report Type: 
  Country: None (occurrence: None)
  Receive Date: 20060731
  Receipt Date: 20060531
  Transmission Date: 20061208
  Serious: No
  Sender: FDA-Public Use
  Company Number: 2006PV014809

PATIENT
  Age: 46 Year
  Sex: Female
  Weight: 97.2512 kg

DRUGS (7)
  1. BYETTA [Suspect]
     Indication: DIABETES MELLITUS NON-INSULIN-DEPENDENT
     Dosage: SEE IMAGE
     Route: 058
     Dates: start: 20060526, end: 20060529
  2. BYETTA [Suspect]
     Indication: DIABETES MELLITUS NON-INSULIN-DEPENDENT
     Dosage: SEE IMAGE
     Route: 058
     Dates: start: 20060529, end: 20060530
  3. BYETTA [Suspect]
     Indication: DIABETES MELLITUS NON-INSULIN-DEPENDENT
     Dosage: SEE IMAGE
     Route: 058
     Dates: start: 20060529, end: 20060531
  4. BYETTA [Suspect]
     Indication: DIABETES MELLITUS NON-INSULIN-DEPENDENT
     Dosage: SEE IMAGE
     Route: 058
     Dates: start: 20060526
  5. BYETTA [Suspect]
     Indication: DIABETES MELLITUS NON-INSULIN-DEPENDENT
     Dosage: SEE IMAGE
     Route: 058
     Dates: start: 20060601
  6. GLIPIZIDE [Concomitant]
  7. KLONOPIN [Concomitant]

REACTIONS (15)
  - AGGRESSION [None]
  - ANGER [None]
  - ANXIETY [None]
  - BLOOD GLUCOSE INCREASED [None]
  - CONDITION AGGRAVATED [None]
  - DIARRHOEA [None]
  - DRUG INEFFECTIVE FOR UNAPPROVED INDICATION [None]
  - DYSPEPSIA [None]
  - FATIGUE [None]
  - FEAR [None]
  - FEELING ABNORMAL [None]
  - FEELING HOT [None]
  - GASTROOESOPHAGEAL REFLUX DISEASE [None]
  - HYPERHIDROSIS [None]
  - STRESS [None]
